FAERS Safety Report 15514790 (Version 2)
Quarter: 2018Q4

REPORT INFORMATION
  Report Type: Spontaneous
  Country: JP (occurrence: JP)
  Receive Date: 20181016
  Receipt Date: 20181107
  Transmission Date: 20190205
  Serious: Yes (Hospitalization, Other)
  Sender: FDA-Public Use
  Company Number: JP-BEH-2018095786

PATIENT
  Sex: Female
  Weight: 1.17 kg

DRUGS (3)
  1. ALBUMIN HUMAN (NC) [Suspect]
     Active Substance: ALBUMIN HUMAN
     Indication: HYPOALBUMINAEMIA
     Route: 065
  2. ANTITHROMBIN III [Suspect]
     Active Substance: ANTITHROMBIN III HUMAN
     Indication: ANTITHROMBIN III DECREASED
     Route: 065
  3. ANTITHROMBIN III [Suspect]
     Active Substance: ANTITHROMBIN III HUMAN
     Indication: THROMBOCYTOPENIA

REACTIONS (2)
  - Low birth weight baby [Unknown]
  - Apgar score low [Unknown]
